FAERS Safety Report 5216916-2 (Version None)
Quarter: 2007Q1

REPORT INFORMATION
  Report Type: 
  Country: None (occurrence: None)
  Receive Date: 20070124
  Receipt Date: 20070115
  Transmission Date: 20070707
  Serious: Yes (Hospitalization)
  Sender: FDA-Public Use
  Company Number: PHRM2007FR00540

PATIENT
  Age: 58 Year
  Sex: Female
  Weight: 76 kg

DRUGS (3)
  1. FENOFIBRATE [Suspect]
     Dosage: 160 MG, QD
     Route: 048
  2. VALSARTAN AND HYDROCHLOROTHIAZIDE [Suspect]
     Indication: HYPERTENSION
     Dosage: 1 DF, QD
     Route: 048
  3. AMLOR [Suspect]
     Dosage: 5 MG, QD
     Route: 048

REACTIONS (1)
  - PULMONARY EMBOLISM [None]
